FAERS Safety Report 8490824-6 (Version None)
Quarter: 2012Q3

REPORT INFORMATION
  Report Type: 
  Country: None (occurrence: None)
  Receive Date: 20120706
  Receipt Date: 20120627
  Transmission Date: 20120928
  Serious: No
  Sender: FDA-Public Use
  Company Number: US-BIOGENIDEC-2012BI022879

PATIENT
  Age: 49 Year
  Sex: Female

DRUGS (7)
  1. AVONEX [Suspect]
     Indication: MULTIPLE SCLEROSIS
     Route: 030
     Dates: start: 20021001, end: 20030301
  2. AVONEX [Suspect]
     Route: 030
     Dates: start: 20111208, end: 20120601
  3. AVONEX [Suspect]
     Route: 030
     Dates: start: 20120601
  4. CLONAZEPAM [Concomitant]
     Indication: COMPLEX REGIONAL PAIN SYNDROME
  5. BACLOFEN [Concomitant]
     Indication: PRODUCT USED FOR UNKNOWN INDICATION
  6. IMPLANTED MORPHINE PUMP [Concomitant]
     Indication: COMPLEX REGIONAL PAIN SYNDROME
     Dates: start: 20041201
  7. CHLORTHALIDONE [Concomitant]
     Indication: HYPERTENSION

REACTIONS (4)
  - WEIGHT DECREASED [None]
  - DEPRESSED MOOD [None]
  - EMOTIONAL DISORDER [None]
  - THYROID FUNCTION TEST ABNORMAL [None]
